FAERS Safety Report 4925419-1 (Version None)
Quarter: 2006Q1

REPORT INFORMATION
  Report Type: 
  Country: None (occurrence: None)
  Receive Date: 20060228
  Receipt Date: 20050216
  Transmission Date: 20060701
  Serious: No
  Sender: FDA-Public Use
  Company Number: US-GLAXOSMITHKLINE-A0545920A

PATIENT
  Sex: Female

DRUGS (4)
  1. LAMICTAL [Suspect]
     Dosage: 75MG THREE TIMES PER DAY
     Route: 048
  2. ALTACE [Concomitant]
  3. LOVASTATIN [Concomitant]
  4. METFORMIN [Concomitant]
     Route: 065

REACTIONS (5)
  - INSOMNIA [None]
  - LYMPHADENOPATHY [None]
  - MOUTH ULCERATION [None]
  - SWELLING FACE [None]
  - SWOLLEN TONGUE [None]
